FAERS Safety Report 8805850 (Version 1)
Quarter: 2012Q4

REPORT INFORMATION
  Report Type: 
  Country: US (occurrence: US)
  Receive Date: 20120925
  Receipt Date: 20120925
  Transmission Date: 20130627
  Serious: No
  Sender: FDA-Public Use
  Company Number: US-009507513-1209USA007908

PATIENT
  Sex: Female

DRUGS (3)
  1. COZAAR [Suspect]
     Indication: HYPERTENSION
     Dosage: 50 mg, twice daily
     Route: 048
     Dates: start: 2010
  2. POTASSIUM (UNSPECIFIED) [Concomitant]
  3. LASIX (FUROSEMIDE) [Concomitant]

REACTIONS (1)
  - Rash [Not Recovered/Not Resolved]
